FAERS Safety Report 8818745 (Version 1)
Quarter: 2012Q4

REPORT INFORMATION
  Report Type: 
  Country: US (occurrence: US)
  Receive Date: 20121001
  Receipt Date: 20121001
  Transmission Date: 20130627
  Serious: Yes (Death, Other)
  Sender: FDA-Public Use
  Company Number: US-ROCHE-1129980

PATIENT
  Sex: Male

DRUGS (2)
  1. HERCEPTIN [Suspect]
     Indication: PERITONEAL CARCINOMA METASTATIC
     Route: 065
  2. TAXOL [Concomitant]

REACTIONS (8)
  - Death [Fatal]
  - Metastasis [Unknown]
  - Ascites [Unknown]
  - Hepatomegaly [Unknown]
  - Abdominal discomfort [Unknown]
  - Diarrhoea [Unknown]
  - Nausea [Unknown]
  - Pain [Unknown]
